FAERS Safety Report 14280549 (Version 2)
Quarter: 2022Q2

REPORT INFORMATION
  Report Type: Spontaneous
  Country: US (occurrence: US)
  Receive Date: 20171212
  Receipt Date: 20220420
  Transmission Date: 20220721
  Serious: No
  Sender: FDA-Public Use
  Company Number: US-BIOGEN-2017BI00491344

PATIENT
  Age: 29 Year
  Sex: Male
  Weight: 72.640 kg

DRUGS (2)
  1. SPINRAZA [Suspect]
     Active Substance: NUSINERSEN
     Indication: Spinal muscular atrophy
     Route: 050
     Dates: start: 20171129
  2. SPINRAZA [Suspect]
     Active Substance: NUSINERSEN
     Dosage: 12MG/5ML ONCE EVERY 4 MONTHS
     Route: 037
     Dates: start: 2017

REACTIONS (1)
  - Post lumbar puncture syndrome [Recovered/Resolved]

NARRATIVE: CASE EVENT DATE: 20171130
